FAERS Safety Report 9982660 (Version 1)
Quarter: 2014Q1

REPORT INFORMATION
  Report Type: Spontaneous
  Country: US (occurrence: US)
  Receive Date: 20140307
  Receipt Date: 20140307
  Transmission Date: 20141002
  Serious: No
  Sender: FDA-Public Use
  Company Number: US-ABBVIE-13P-163-1177443-00

PATIENT
  Age: 39 Year
  Sex: Female
  Weight: 61.74 kg

DRUGS (3)
  1. HUMIRA [Suspect]
     Indication: CROHN^S DISEASE
     Route: 058
     Dates: start: 20131204
  2. HYDROXYZINE [Concomitant]
     Indication: PRURITUS
     Dates: start: 201307
  3. FLUOCINONIDE [Concomitant]
     Indication: URTICARIA
     Dates: start: 201206

REACTIONS (2)
  - Injection site haemorrhage [Recovered/Resolved]
  - Incorrect dose administered [Recovered/Resolved]
